FAERS Safety Report 13178430 (Version 4)
Quarter: 2017Q1

REPORT INFORMATION
  Report Type: Spontaneous
  Country: US (occurrence: US)
  Receive Date: 20170202
  Receipt Date: 20170306
  Transmission Date: 20170428
  Serious: No
  Sender: FDA-Public Use
  Company Number: US-ASTRAZENECA-2017SE10406

PATIENT
  Age: 70 Year
  Sex: Female
  Weight: 66.2 kg

DRUGS (3)
  1. BYDUREON [Suspect]
     Active Substance: EXENATIDE
     Indication: TYPE 2 DIABETES MELLITUS
     Route: 058
     Dates: start: 20170126
  2. NEXIUM [Suspect]
     Active Substance: ESOMEPRAZOLE MAGNESIUM
     Indication: GASTROOESOPHAGEAL REFLUX DISEASE
     Dosage: 20 MG, OCCASIONALLY
     Route: 048
  3. PRILOSEC [Suspect]
     Active Substance: OMEPRAZOLE MAGNESIUM
     Indication: GASTROOESOPHAGEAL REFLUX DISEASE
     Route: 048

REACTIONS (14)
  - Blood glucose increased [Unknown]
  - Constipation [Unknown]
  - Off label use [Unknown]
  - Injection site pain [Unknown]
  - Intentional product misuse [Unknown]
  - Product quality issue [Unknown]
  - Pruritus [Unknown]
  - Memory impairment [Unknown]
  - Dehydration [Unknown]
  - Gastrooesophageal reflux disease [Unknown]
  - Injection site mass [Unknown]
  - Diabetes mellitus [Not Recovered/Not Resolved]
  - Influenza [Unknown]
  - Wrong technique in product usage process [Unknown]

NARRATIVE: CASE EVENT DATE: 20170126
